FAERS Safety Report 23660167 (Version 3)
Quarter: 2024Q2

REPORT INFORMATION
  Report Type: Spontaneous
  Country: BR (occurrence: BR)
  Receive Date: 20240321
  Receipt Date: 20240405
  Transmission Date: 20240716
  Serious: Yes (Other)
  Sender: FDA-Public Use
  Company Number: BR-009507513-2403BRA006253

PATIENT
  Sex: Female

DRUGS (15)
  1. PEMBROLIZUMAB [Suspect]
     Active Substance: PEMBROLIZUMAB
     Indication: Breast cancer
     Dosage: FIRST DOSE
     Dates: start: 20231228, end: 20231228
  2. PEMBROLIZUMAB [Suspect]
     Active Substance: PEMBROLIZUMAB
     Dosage: CYCLE 1 DAY 15
     Dates: start: 20240112, end: 20240112
  3. PEMBROLIZUMAB [Suspect]
     Active Substance: PEMBROLIZUMAB
     Dosage: CYCLE 2 DAY 8
     Dates: start: 20240125, end: 20240125
  4. PEMBROLIZUMAB [Suspect]
     Active Substance: PEMBROLIZUMAB
     Dosage: CYCLE 3 DAY 1
     Dates: start: 20240208, end: 20240208
  5. PEMBROLIZUMAB [Suspect]
     Active Substance: PEMBROLIZUMAB
     Dosage: CYCLE 3 DAY 8
     Dates: start: 20240222, end: 20240222
  6. PACLITAXEL [Suspect]
     Active Substance: PACLITAXEL
     Indication: Breast cancer
     Dosage: FIRST DOSE
     Dates: start: 20231228, end: 20231228
  7. PACLITAXEL [Suspect]
     Active Substance: PACLITAXEL
     Dosage: CYCLE 1 DAY 15
     Dates: start: 20240112, end: 20240112
  8. PACLITAXEL [Suspect]
     Active Substance: PACLITAXEL
     Dosage: CYCLE 2 DAY 8
     Dates: start: 20240125, end: 20240125
  9. PACLITAXEL [Suspect]
     Active Substance: PACLITAXEL
     Dosage: CYCLE 3 DAY 1
     Dates: start: 20240208, end: 20240208
  10. PACLITAXEL [Suspect]
     Active Substance: PACLITAXEL
     Dosage: CYCLE 3 DAY 8
     Dates: start: 20240222, end: 20240222
  11. CARBOPLATIN [Suspect]
     Active Substance: CARBOPLATIN
     Indication: Breast cancer
     Dosage: FIRST DOSE
     Dates: start: 20231228, end: 20231228
  12. CARBOPLATIN [Suspect]
     Active Substance: CARBOPLATIN
     Dosage: CYCLE 1 DAY 15
     Dates: start: 20240112, end: 20240112
  13. CARBOPLATIN [Suspect]
     Active Substance: CARBOPLATIN
     Dosage: CYCLE 2 DAY 8
     Dates: start: 20240125, end: 20240125
  14. CARBOPLATIN [Suspect]
     Active Substance: CARBOPLATIN
     Dosage: CYCLE 3 DAY 1
     Dates: start: 20240208
  15. CARBOPLATIN [Suspect]
     Active Substance: CARBOPLATIN
     Dosage: CYCLE 3 DAY 8
     Dates: start: 20240222, end: 20240222

REACTIONS (10)
  - Catheter site dehiscence [Unknown]
  - Central venous catheterisation [Unknown]
  - Catheter site pain [Unknown]
  - Pain [Unknown]
  - Impaired healing [Unknown]
  - Suture removal [Unknown]
  - Inappropriate schedule of product administration [Unknown]
  - Inappropriate schedule of product administration [Unknown]
  - Inappropriate schedule of product administration [Unknown]
  - Inappropriate schedule of product administration [Unknown]

NARRATIVE: CASE EVENT DATE: 20240101
